FAERS Safety Report 11185235 (Version 1)
Quarter: 2015Q2

REPORT INFORMATION
  Report Type: Spontaneous
  Country: US (occurrence: None)
  Receive Date: 20150611
  Receipt Date: 20150611
  Transmission Date: 20150821
  Serious: Yes (Other)
  Sender: FDA-Public Use
  Company Number: None

PATIENT
  Age: 65 Year
  Sex: Female
  Weight: 80.74 kg

DRUGS (12)
  1. TOPROL XL [Concomitant]
     Active Substance: METOPROLOL SUCCINATE
  2. PRAMIPEXOLE [Suspect]
     Active Substance: PRAMIPEXOLE
  3. LEVOTHYROXIN [Concomitant]
     Active Substance: LEVOTHYROXINE
  4. MAGNESIUM [Concomitant]
     Active Substance: MAGNESIUM
  5. MIRAPEX [Suspect]
     Active Substance: PRAMIPEXOLE DIHYDROCHLORIDE
     Indication: MUSCLE SPASMS
     Route: 048
     Dates: start: 20030601, end: 20150609
  6. VITAMIN D [Concomitant]
     Active Substance: CHOLECALCIFEROL
  7. COUMADIN [Concomitant]
     Active Substance: WARFARIN SODIUM
  8. FLEXARIL [Concomitant]
  9. KLONAPIN [Concomitant]
  10. MIRAPEX [Suspect]
     Active Substance: PRAMIPEXOLE DIHYDROCHLORIDE
     Indication: CEREBROVASCULAR ACCIDENT
     Route: 048
     Dates: start: 20030601, end: 20150609
  11. KEPPRA [Concomitant]
     Active Substance: LEVETIRACETAM
  12. LIPITOR [Concomitant]
     Active Substance: ATORVASTATIN CALCIUM

REACTIONS (2)
  - Bankruptcy [None]
  - Pathological gambling [None]

NARRATIVE: CASE EVENT DATE: 20150602
